FAERS Safety Report 8816782 (Version 1)
Quarter: 2012Q4

REPORT INFORMATION
  Report Type: Spontaneous
  Country: GB (occurrence: None)
  Receive Date: 20121001
  Receipt Date: 20121001
  Transmission Date: 20130627
  Serious: Yes (Death, Other)
  Sender: FDA-Public Use
  Company Number: EUS-2012-00740

PATIENT
  Age: 53 Year
  Sex: Female

DRUGS (1)
  1. ASPARAGINASE [Suspect]

REACTIONS (3)
  - Anaemia haemolytic autoimmune [None]
  - Diffuse large B-cell lymphoma [None]
  - Epstein-Barr viraemia [None]
